FAERS Safety Report 10191262 (Version 2)
Quarter: 2014Q2

REPORT INFORMATION
  Report Type: Spontaneous
  Country: US (occurrence: US)
  Receive Date: 20140523
  Receipt Date: 20140620
  Transmission Date: 20141212
  Serious: Yes (Other)
  Sender: FDA-Public Use
  Company Number: CHPA2014US006912

PATIENT
  Age: 40 Year
  Sex: Female

DRUGS (4)
  1. VOLTAREN GEL [Suspect]
     Indication: PAIN
     Dosage: UNK, UNK
     Route: 061
     Dates: start: 201403
  2. VOLTAREN GEL [Suspect]
     Indication: DRUG ADMINISTERED AT INAPPROPRIATE SITE
  3. VOLTAREN GEL [Suspect]
     Indication: OFF LABEL USE
  4. IBUPROFEN [Concomitant]
     Dosage: UNK, UNK

REACTIONS (2)
  - Neoplasm malignant [Not Recovered/Not Resolved]
  - Therapeutic response changed [Unknown]
